FAERS Safety Report 21392714 (Version 1)
Quarter: 2022Q3

REPORT INFORMATION
  Report Type: Spontaneous
  Country: CA (occurrence: CA)
  Receive Date: 20220929
  Receipt Date: 20220929
  Transmission Date: 20221027
  Serious: Yes (Other)
  Sender: FDA-Public Use
  Company Number: CA-PFIZER INC-202201190905

PATIENT
  Age: 49 Year
  Sex: Female
  Weight: 87 kg

DRUGS (2)
  1. XELJANZ [Suspect]
     Active Substance: TOFACITINIB CITRATE
     Indication: Colitis ulcerative
     Dosage: 10MG TWICE DAILY FOR 26 WEEKS, THEN 5MG TWICE DAILY
     Route: 048
     Dates: start: 20211113
  2. XELJANZ [Suspect]
     Active Substance: TOFACITINIB CITRATE
     Dosage: 5MG TWICE DAILY
     Route: 048
     Dates: start: 2022

REACTIONS (5)
  - Crohn^s disease [Unknown]
  - Product prescribing error [Unknown]
  - Frequent bowel movements [Not Recovered/Not Resolved]
  - Faeces soft [Not Recovered/Not Resolved]
  - Faecal calprotectin increased [Not Recovered/Not Resolved]

NARRATIVE: CASE EVENT DATE: 20211113
